FAERS Safety Report 6130806-2 (Version None)
Quarter: 2009Q1

REPORT INFORMATION
  Report Type: 
  Country: None (occurrence: None)
  Receive Date: 20090325
  Receipt Date: 20090316
  Transmission Date: 20090719
  Serious: Yes (Other)
  Sender: FDA-Public Use
  Company Number: US-BIOGENIDEC-2009BI001424

PATIENT
  Age: 25 Year
  Sex: Male
  Weight: 90 kg

DRUGS (3)
  1. TYSABRI [Suspect]
     Indication: MULTIPLE SCLEROSIS
     Route: 042
     Dates: start: 20090112
  2. NORTRIPTYLINE HCL [Concomitant]
     Indication: DEPRESSION
  3. NEXIUM [Concomitant]
     Indication: PROPHYLAXIS

REACTIONS (4)
  - CONDITION AGGRAVATED [None]
  - CONVULSION [None]
  - MIGRAINE [None]
  - PHARYNGITIS STREPTOCOCCAL [None]
